FAERS Safety Report 21302548 (Version 4)
Quarter: 2022Q4

REPORT INFORMATION
  Report Type: Report from Study
  Country: CO (occurrence: CO)
  Receive Date: 20220907
  Receipt Date: 20221212
  Transmission Date: 20230113
  Serious: No
  Sender: FDA-Public Use
  Company Number: CO-NOVARTISPH-NVSC2022CO201413

PATIENT
  Sex: Female
  Weight: 65 kg

DRUGS (8)
  1. COSENTYX [Suspect]
     Active Substance: SECUKINUMAB
     Indication: Psoriatic arthropathy
     Dosage: 300 MG, QMO
     Route: 058
     Dates: start: 2018
  2. COSENTYX [Suspect]
     Active Substance: SECUKINUMAB
     Dosage: 300 MG, Q2MO
     Route: 058
  3. COSENTYX [Suspect]
     Active Substance: SECUKINUMAB
     Dosage: UNK
     Route: 065
     Dates: start: 202208
  4. SOLIFENACIN [Concomitant]
     Active Substance: SOLIFENACIN
     Indication: Incontinence
     Dosage: 5 MG, QD (SINCE 5  YEARS AGO)
     Route: 048
  5. MIRABEGRON [Concomitant]
     Active Substance: MIRABEGRON
     Indication: Incontinence
     Dosage: 50 MG, QD (SINCE 5 YEARS AGO)
     Route: 048
  6. CALCITRIOL [Concomitant]
     Active Substance: CALCITRIOL
     Indication: Blood calcium abnormal
     Dosage: 0.25 MG, QD
     Route: 048
  7. LIDOCAINE [Concomitant]
     Active Substance: LIDOCAINE
     Indication: Pain
     Dosage: UNK, QD
     Route: 061
     Dates: start: 202204
  8. DESONIDE [Concomitant]
     Active Substance: DESONIDE
     Indication: Antiinflammatory therapy
     Dosage: 0.05 %, QD (SINCE 3  YEARS AGO)
     Route: 061

REACTIONS (10)
  - Decreased immune responsiveness [Unknown]
  - Influenza [Recovered/Resolved]
  - Malaise [Unknown]
  - Oropharyngeal pain [Unknown]
  - Decreased appetite [Unknown]
  - Secretion discharge [Unknown]
  - Pain in extremity [Unknown]
  - Therapeutic product effect incomplete [Unknown]
  - Psoriasis [Unknown]
  - Off label use [Unknown]
